FAERS Safety Report 7337537-1 (Version None)
Quarter: 2011Q1

REPORT INFORMATION
  Report Type: 
  Country: None (occurrence: None)
  Receive Date: 20110308
  Receipt Date: 20091122
  Transmission Date: 20110831
  Serious: Yes (Other)
  Sender: FDA-Public Use
  Company Number: US-BAYER-201041876NA

PATIENT
  Sex: Female
  Weight: 113 kg

DRUGS (20)
  1. DEXAMETHASONE [Concomitant]
     Indication: PRODUCT USED FOR UNKNOWN INDICATION
     Dosage: 6 MG Q6H
     Route: 042
     Dates: start: 20001102, end: 20001111
  2. PREDNISONE [Concomitant]
     Indication: PRODUCT USED FOR UNKNOWN INDICATION
     Dosage: 20 MG, TID
     Route: 048
     Dates: start: 20001111
  3. VANCOMYCIN [Concomitant]
     Dosage: 1 MG EVERY 12 HOURS
     Route: 042
     Dates: start: 20001114
  4. AMPICILLIN [Concomitant]
     Indication: PRODUCT USED FOR UNKNOWN INDICATION
     Dosage: 3 MG Q6H
     Route: 042
     Dates: start: 20001109
  5. ANCEF [Concomitant]
     Indication: PRODUCT USED FOR UNKNOWN INDICATION
     Dosage: 1 G, UNK
     Route: 042
     Dates: start: 20001114
  6. PLASMA [Concomitant]
     Indication: PRODUCT USED FOR UNKNOWN INDICATION
     Dosage: 4 U, UNK
     Dates: start: 20001114
  7. UNASYN [Concomitant]
     Indication: PRODUCT USED FOR UNKNOWN INDICATION
     Dosage: 3 GM Q6H
     Route: 042
     Dates: start: 20001107, end: 20001110
  8. HEPARIN [Concomitant]
     Indication: PRODUCT USED FOR UNKNOWN INDICATION
     Dosage: 600 U, Q1HR
     Route: 042
     Dates: start: 20001102
  9. VERSED [Concomitant]
     Indication: PRODUCT USED FOR UNKNOWN INDICATION
     Dosage: 4 MG, UNK
     Route: 042
     Dates: start: 20001114
  10. RED BLOOD CELLS [Concomitant]
     Indication: PRODUCT USED FOR UNKNOWN INDICATION
     Dosage: 6 U, UNK
  11. ZOSYN [Concomitant]
     Indication: PRODUCT USED FOR UNKNOWN INDICATION
     Dosage: 4.5 MG Q6H
     Route: 042
     Dates: start: 20001011
  12. MORPHINE SULFATE [Concomitant]
     Indication: PRODUCT USED FOR UNKNOWN INDICATION
     Dosage: 2-6 MG Q3-4H
     Route: 042
  13. ASPIRIN [Concomitant]
     Indication: PRODUCT USED FOR UNKNOWN INDICATION
     Dosage: 325 MG, QD
     Route: 048
     Dates: start: 20001107, end: 20001113
  14. VANCOMYCIN [Concomitant]
     Indication: PRODUCT USED FOR UNKNOWN INDICATION
     Dosage: 1 MG, UNK
     Route: 042
     Dates: start: 20001111
  15. CIPRO [Concomitant]
     Indication: PRODUCT USED FOR UNKNOWN INDICATION
     Dosage: 400 MG, UNK
     Route: 042
     Dates: start: 20001114
  16. TRASYLOL [Suspect]
     Indication: MITRAL VALVE REPAIR
     Dosage: 200 ML THEN 50 ML/HR
     Route: 042
     Dates: start: 20001114, end: 20001114
  17. PROTAMINE SULFATE [Concomitant]
     Indication: PRODUCT USED FOR UNKNOWN INDICATION
  18. HEPARIN [Concomitant]
     Dosage: 20000 U, UNK
     Route: 042
     Dates: start: 20001114
  19. CIPROFLOXACIN [Concomitant]
     Indication: PRODUCT USED FOR UNKNOWN INDICATION
     Dosage: 400 MG Q12H
     Route: 042
     Dates: start: 20001108, end: 20001110
  20. SOLU-MEDROL [Concomitant]
     Indication: PRODUCT USED FOR UNKNOWN INDICATION
     Dosage: 250 MG, UNK
     Route: 042
     Dates: start: 20001114

REACTIONS (11)
  - INJURY [None]
  - COMA [None]
  - RENAL INJURY [None]
  - STRESS [None]
  - FEAR [None]
  - RENAL FAILURE [None]
  - UNEVALUABLE EVENT [None]
  - RENAL IMPAIRMENT [None]
  - EMOTIONAL DISTRESS [None]
  - ANXIETY [None]
  - PAIN [None]
